FAERS Safety Report 24357574 (Version 1)
Quarter: 2024Q3

REPORT INFORMATION
  Report Type: Spontaneous
  Country: PL (occurrence: PL)
  Receive Date: 20240924
  Receipt Date: 20240924
  Transmission Date: 20241016
  Serious: Yes (Hospitalization, Other)
  Sender: PFIZER
  Company Number: PL-BRISTOL-MYERS SQUIBB COMPANY-2024-145901

PATIENT
  Age: 64 Year

DRUGS (4)
  1. CARBOPLATIN [Suspect]
     Active Substance: CARBOPLATIN
     Indication: Squamous cell carcinoma
     Dosage: 5 AUC
     Dates: start: 20230512, end: 20230602
  2. PACLITAXEL [Suspect]
     Active Substance: PACLITAXEL
     Indication: Squamous cell carcinoma
     Dosage: 175 MG/KG, EVERY 3 WEEKS
     Dates: start: 20230512, end: 20230602
  3. OPDIVO [Suspect]
     Active Substance: NIVOLUMAB
     Indication: Squamous cell carcinoma
     Dosage: 360 MG, EVERY 3 WEEKS
     Dates: start: 20230512, end: 202308
  4. YERVOY [Suspect]
     Active Substance: IPILIMUMAB
     Indication: Squamous cell carcinoma
     Dosage: 1 MG/KG, FREQ:6 WK
     Dates: start: 20230512, end: 202308

REACTIONS (1)
  - Immune-mediated lung disease [Unknown]
